FAERS Safety Report 9340222 (Version 2)
Quarter: 2013Q3

REPORT INFORMATION
  Report Type: Spontaneous
  Country: US (occurrence: US)
  Receive Date: 20130610
  Receipt Date: 20130910
  Transmission Date: 20140515
  Serious: No
  Sender: FDA-Public Use
  Company Number: US-ASTELLAS-2013US004548

PATIENT
  Age: 86 Year
  Sex: Male

DRUGS (1)
  1. XTANDI [Suspect]
     Indication: PROSTATE CANCER STAGE IV
     Dosage: 160 MG, UID/QD
     Route: 048
     Dates: start: 20130322, end: 20130324

REACTIONS (3)
  - Product size issue [Unknown]
  - Dysphagia [Recovering/Resolving]
  - Mental disorder [Unknown]
